FAERS Safety Report 25099170 (Version 1)
Quarter: 2025Q1

REPORT INFORMATION
  Report Type: Spontaneous
  Country: US (occurrence: US)
  Receive Date: 20250320
  Receipt Date: 20250320
  Transmission Date: 20250409
  Serious: No
  Sender: GLENMARK
  Company Number: US-GLENMARK PHARMACEUTICALS-2024GMK089914

PATIENT

DRUGS (13)
  1. LITHIUM CARBONATE [Suspect]
     Active Substance: LITHIUM CARBONATE
     Indication: Mania
     Dosage: 3 DOSAGE FORM, BID
     Route: 065
  2. LITHIUM CARBONATE [Suspect]
     Active Substance: LITHIUM CARBONATE
     Route: 065
     Dates: start: 20240401, end: 20240408
  3. LITHIUM CARBONATE [Suspect]
     Active Substance: LITHIUM CARBONATE
     Dosage: 7 DOSAGE FORM, QD
     Route: 065
  4. LITHIUM CARBONATE [Suspect]
     Active Substance: LITHIUM CARBONATE
     Route: 065
  5. FAMOTIDINE [Suspect]
     Active Substance: FAMOTIDINE
     Indication: Fungal skin infection
     Route: 065
     Dates: start: 20240322
  6. NYSTATIN\TRIAMCINOLONE [Suspect]
     Active Substance: NYSTATIN\TRIAMCINOLONE
     Indication: Fungal skin infection
     Route: 065
  7. PROLIXIN [Suspect]
     Active Substance: FLUPHENAZINE HYDROCHLORIDE
     Indication: Mania
     Route: 065
  8. LAMICTAL [Suspect]
     Active Substance: LAMOTRIGINE
     Indication: Mania
     Route: 065
  9. TOPAMAX [Suspect]
     Active Substance: TOPIRAMATE
     Indication: Mania
     Route: 065
  10. RISPERDAL [Concomitant]
     Active Substance: RISPERIDONE
     Indication: Product used for unknown indication
     Route: 065
  11. RISPERDAL [Concomitant]
     Active Substance: RISPERIDONE
     Route: 065
  12. ATIVAN [Concomitant]
     Active Substance: LORAZEPAM
     Indication: Product used for unknown indication
     Route: 065
  13. SERTRALINE [Concomitant]
     Active Substance: SERTRALINE HYDROCHLORIDE
     Indication: Product used for unknown indication
     Route: 065

REACTIONS (8)
  - Drug level decreased [Unknown]
  - Mania [Unknown]
  - Malabsorption [Unknown]
  - Drug interaction [Unknown]
  - Diarrhoea [Unknown]
  - Weight increased [Unknown]
  - Incorrect dose administered [Unknown]
  - Product size issue [Unknown]

NARRATIVE: CASE EVENT DATE: 20230601
